FAERS Safety Report 18155727 (Version 1)
Quarter: 2020Q3

REPORT INFORMATION
  Report Type: Other
  Country: AU (occurrence: AU)
  Receive Date: 20200817
  Receipt Date: 20200817
  Transmission Date: 20201103
  Serious: Yes (Other)
  Sender: FDA-Public Use
  Company Number: AU-ROCHE-2658570

PATIENT
  Age: 47 Year
  Sex: Female

DRUGS (3)
  1. CHLORAMBUCIL [Suspect]
     Active Substance: CHLORAMBUCIL
     Indication: LYMPHADENOPATHY
     Route: 065
  2. OBINUTUZUMAB. [Suspect]
     Active Substance: OBINUTUZUMAB
     Indication: LYMPHADENOPATHY
     Dosage: DAY 1?2 IN SPLIT DOSES, DAY 8, AND DAY 15. ONLY ONE DOSE OF OBINUTUZUMAB 1000 MG ON DAY 1 WAS GIVEN
     Route: 042
  3. DEXAMETHASONE. [Concomitant]
     Active Substance: DEXAMETHASONE
     Route: 042

REACTIONS (4)
  - Dyspnoea [Recovered/Resolved]
  - Stridor [Recovered/Resolved]
  - Dysphagia [Recovered/Resolved]
  - Richter^s syndrome [Recovered/Resolved]
